FAERS Safety Report 19145032 (Version 1)
Quarter: 2021Q2

REPORT INFORMATION
  Report Type: Spontaneous
  Country: US (occurrence: US)
  Receive Date: 20210416
  Receipt Date: 20210416
  Transmission Date: 20210717
  Serious: Yes (Hospitalization, Other)
  Sender: FDA-Public Use
  Company Number: US-ELI_LILLY_AND_COMPANY-US202104005655

PATIENT
  Sex: Female

DRUGS (1)
  1. HUMALOG MIX75/25 [Suspect]
     Active Substance: INSULIN LISPRO
     Indication: PRODUCT USED FOR UNKNOWN INDICATION
     Dosage: UNK UNK, UNKNOWN
     Route: 065
     Dates: start: 2013

REACTIONS (7)
  - Hepatic cirrhosis [Unknown]
  - Pneumonia [Recovering/Resolving]
  - Breast cancer [Recovering/Resolving]
  - Malignant melanoma [Recovering/Resolving]
  - Basal cell carcinoma [Recovering/Resolving]
  - Colorectal cancer [Recovering/Resolving]
  - Pancreatitis chronic [Unknown]

NARRATIVE: CASE EVENT DATE: 2013
